FAERS Safety Report 4321897-X (Version None)
Quarter: 2004Q1

REPORT INFORMATION
  Report Type: 
  Country: None (occurrence: None)
  Receive Date: 20040318
  Receipt Date: 20040302
  Transmission Date: 20041129
  Serious: Yes (Death, Hospitalization, Other)
  Sender: FDA-Public Use
  Company Number: 216409

PATIENT
  Age: 32 Year
  Sex: Male
  Weight: 80 kg

DRUGS (4)
  1. NOVOSEVEN [Suspect]
     Indication: INJURY
     Dosage: 3 DOSES, INTRAVENOUS
     Route: 042
     Dates: start: 20020509, end: 20020509
  2. MORPHINE [Concomitant]
  3. ADRENALIN (EPINEPHRINE) [Concomitant]
  4. DORMICUM FOR INJECTION (MIDAZOLAM HYDROCHLORIDE) [Concomitant]

REACTIONS (11)
  - ARTERIAL THROMBOSIS LIMB [None]
  - BLOOD PH DECREASED [None]
  - BRAIN OEDEMA [None]
  - FEMORAL ARTERY OCCLUSION [None]
  - GENERAL PHYSICAL HEALTH DETERIORATION [None]
  - HEART RATE INCREASED [None]
  - HYPOTENSION [None]
  - HYPOVOLAEMIC SHOCK [None]
  - INTRAVENTRICULAR HAEMORRHAGE [None]
  - PO2 INCREASED [None]
  - PULMONARY OEDEMA [None]
